FAERS Safety Report 4390418-8 (Version None)
Quarter: 2004Q2

REPORT INFORMATION
  Report Type: 
  Country: None (occurrence: None)
  Receive Date: 20040630
  Receipt Date: 20040614
  Transmission Date: 20050107
  Serious: Yes (Disabling, Other)
  Sender: FDA-Public Use
  Company Number: 2004RL000069

PATIENT
  Age: 85 Year
  Sex: Male
  Weight: 71.6683 kg

DRUGS (19)
  1. RYTHMOL [Suspect]
     Indication: ATRIAL FIBRILLATION
     Dosage: 150 MG;Q8H; PO
     Route: 048
  2. ATROVENT [Suspect]
     Indication: CHRONIC OBSTRUCTIVE AIRWAYS DISEASE
     Dosage: 0.5 CMG;QID; INH
  3. XOPENEX [Suspect]
     Indication: CHRONIC OBSTRUCTIVE AIRWAYS DISEASE
     Dosage: 0.63 MG; QID; INH
  4. SYNTHROID [Concomitant]
  5. LASIX [Concomitant]
  6. FLOMAX [Concomitant]
  7. NORVASC [Concomitant]
  8. ZOLOFT [Concomitant]
  9. ASPIRIN [Concomitant]
  10. PRILOSEC [Concomitant]
  11. ADVAIR DISKUS 100/50 [Concomitant]
  12. PLAVIX [Concomitant]
  13. KCL TAB [Concomitant]
  14. METOPROLOL [Concomitant]
  15. DIOVAN HCL [Concomitant]
  16. LEVAQUIN [Concomitant]
  17. ACETAMINOPHEN [Concomitant]
  18. BISACODYL [Concomitant]
  19. SODIUM CHLORIDE INJ [Concomitant]

REACTIONS (30)
  - ABASIA [None]
  - ACTIVITIES OF DAILY LIVING IMPAIRED [None]
  - ASTHENIA [None]
  - ATRIAL FIBRILLATION [None]
  - BLOOD ALBUMIN DECREASED [None]
  - BLOOD CREATINE INCREASED [None]
  - BLOOD UREA INCREASED [None]
  - BRONCHITIS [None]
  - BRONCHOSPASM [None]
  - CONFUSIONAL STATE [None]
  - CONSTIPATION [None]
  - DEHYDRATION [None]
  - DIARRHOEA [None]
  - DISORIENTATION [None]
  - DYSPHAGIA [None]
  - DYSPNOEA [None]
  - GINGIVAL INFECTION [None]
  - HALLUCINATION [None]
  - HYPOTENSION [None]
  - INJURY [None]
  - JOINT RANGE OF MOTION DECREASED [None]
  - MALNUTRITION [None]
  - MEDICATION ERROR [None]
  - MENTAL STATUS CHANGES [None]
  - MOVEMENT DISORDER [None]
  - PUPILLARY REFLEX IMPAIRED [None]
  - TREATMENT NONCOMPLIANCE [None]
  - URINARY INCONTINENCE [None]
  - WEIGHT DECREASED [None]
  - WOUND [None]
